FAERS Safety Report 5704138-8 (Version None)
Quarter: 2008Q2

REPORT INFORMATION
  Report Type: 
  Country: None (occurrence: None)
  Receive Date: 20080414
  Receipt Date: 20080414
  Transmission Date: 20081010
  Serious: Yes (Other)
  Sender: FDA-Public Use
  Company Number: None

PATIENT
  Age: 54 Year
  Sex: Male
  Weight: 88.4514 kg

DRUGS (1)
  1. HEPARIN [Suspect]
     Indication: GUILLAIN-BARRE SYNDROME
     Dosage: 1-3 ME PRE-POST INFUSION INTRA-ARTERIAL
     Route: 013
     Dates: start: 20080213, end: 20080217

REACTIONS (3)
  - BURNING SENSATION [None]
  - PHARMACEUTICAL PRODUCT COMPLAINT [None]
  - RASH [None]
